FAERS Safety Report 17562967 (Version 1)
Quarter: 2020Q1

REPORT INFORMATION
  Report Type: Spontaneous
  Country: FR (occurrence: FR)
  Receive Date: 20200319
  Receipt Date: 20200319
  Transmission Date: 20200409
  Serious: Yes (Hospitalization)
  Sender: FDA-Public Use
  Company Number: FR-SUN PHARMACEUTICAL INDUSTRIES LTD-2020RR-240954

PATIENT
  Age: 78 Year
  Sex: Female
  Weight: 55 kg

DRUGS (8)
  1. FOSAVANCE, COMPRIME [Concomitant]
     Indication: PRODUCT USED FOR UNKNOWN INDICATION
     Dosage: UNK
     Route: 065
  2. SPAGULAX MUCILAGE PUR, GRANULES [Concomitant]
     Indication: PRODUCT USED FOR UNKNOWN INDICATION
     Dosage: UNK
     Route: 065
  3. SERTRALINE [Suspect]
     Active Substance: SERTRALINE HYDROCHLORIDE
     Indication: DEPRESSION
     Dosage: 25 MILLIGRAM, DAILY
     Route: 048
  4. LAMALINE (ACETAMINOPHEN\CAFFEINE\OPIUM) [Concomitant]
     Active Substance: ACETAMINOPHEN\CAFFEINE\OPIUM
     Indication: PRODUCT USED FOR UNKNOWN INDICATION
     Dosage: UNK
     Route: 065
  5. TRANSULOSE, GELEE ORALE EN POT [Concomitant]
     Active Substance: LACTULOSE\MINERAL OIL\PARAFFIN
     Indication: PRODUCT USED FOR UNKNOWN INDICATION
     Dosage: UNK
     Route: 065
  6. RISPERDAL [Suspect]
     Active Substance: RISPERIDONE
     Indication: DEPRESSION
     Dosage: 0.5 MILLIGRAM, DAILY
     Route: 048
  7. FUMAFER [Concomitant]
     Active Substance: FERROUS FUMARATE
     Indication: PRODUCT USED FOR UNKNOWN INDICATION
     Dosage: UNK
     Route: 065
  8. LEVOTHYROX 100 MICROGRAMMES, COMPRIME SECABLE [Concomitant]
     Active Substance: LEVOTHYROXINE
     Indication: PRODUCT USED FOR UNKNOWN INDICATION
     Dosage: UNK
     Route: 065

REACTIONS (2)
  - Pulmonary embolism [Recovering/Resolving]
  - Dyspnoea [Unknown]

NARRATIVE: CASE EVENT DATE: 202001
